FAERS Safety Report 8189936-6 (Version None)
Quarter: 2012Q1

REPORT INFORMATION
  Report Type: 
  Country: None (occurrence: None)
  Receive Date: 20120305
  Receipt Date: 20120220
  Transmission Date: 20120608
  Serious: Yes (Death)
  Sender: FDA-Public Use
  Company Number: UTC-015802

PATIENT
  Age: 69 Year
  Sex: Female

DRUGS (2)
  1. DIURETICS (DIURETICS) [Concomitant]
  2. REMODULIN [Suspect]
     Dosage: (0.044 UG/KG),SUBCUTANEOUS
     Route: 058
     Dates: start: 20110906

REACTIONS (1)
  - DEATH [None]
